FAERS Safety Report 16544915 (Version 1)
Quarter: 2019Q3

REPORT INFORMATION
  Report Type: Spontaneous
  Country: US (occurrence: US)
  Receive Date: 20190708
  Receipt Date: 20190708
  Transmission Date: 20191004
  Serious: Yes (Other)
  Sender: FDA-Public Use
  Company Number: None

PATIENT
  Age: 40 Year
  Sex: Female
  Weight: 94.5 kg

DRUGS (8)
  1. BUPROPION HCL XL 150 MG [Suspect]
     Active Substance: BUPROPION HYDROCHLORIDE
     Indication: SEASONAL AFFECTIVE DISORDER
     Dosage: ?          QUANTITY:1 TABLET(S);OTHER ROUTE:BY MOUTH?          IS THERAPY STILL ON-GOING? - YES?
     Dates: start: 20190610, end: 20190708
  2. BUPROPION. [Concomitant]
     Active Substance: BUPROPION
  3. BUPROPION HCL XL 150 MG [Suspect]
     Active Substance: BUPROPION HYDROCHLORIDE
     Indication: DEPRESSION
     Dosage: ?          QUANTITY:1 TABLET(S);OTHER ROUTE:BY MOUTH?          IS THERAPY STILL ON-GOING? - YES?
     Dates: start: 20190610, end: 20190708
  4. VITAMIN B COMPLEX [Concomitant]
     Active Substance: CYANOCOBALAMIN\DEXPANTHENOL\NIACINAMIDE\PYRIDOXINE HYDROCHLORIDE\RIBOFLAVIN 5^-PHOSPHATE SODIUM\THIAMINE HYDROCHLORIDE\VITAMIN B COMPLEX
  5. LEVOTHYROXINE. [Concomitant]
     Active Substance: LEVOTHYROXINE
  6. BUPROPION HCL XL 150 MG [Suspect]
     Active Substance: BUPROPION HYDROCHLORIDE
     Indication: SUICIDAL IDEATION
     Dosage: ?          QUANTITY:1 TABLET(S);OTHER ROUTE:BY MOUTH?          IS THERAPY STILL ON-GOING? - YES?
     Dates: start: 20190610, end: 20190708
  7. ATENOLOL. [Concomitant]
     Active Substance: ATENOLOL
  8. OCCASIONAL TYLENOL [Concomitant]

REACTIONS (5)
  - Feeding disorder [None]
  - Therapeutic response changed [None]
  - Abdominal pain [None]
  - Crying [None]
  - Emotional disorder [None]

NARRATIVE: CASE EVENT DATE: 20190610
